FAERS Safety Report 9009914 (Version 1)
Quarter: 2013Q1

REPORT INFORMATION
  Report Type: Spontaneous
  Country: US (occurrence: US)
  Receive Date: 20130112
  Receipt Date: 20130112
  Transmission Date: 20140127
  Serious: Yes (Hospitalization)
  Sender: FDA-Public Use
  Company Number: US-009507513-1301USA004053

PATIENT
  Age: 30 Year
  Sex: Female

DRUGS (2)
  1. SINGULAIR [Suspect]
     Indication: COUGH
     Dosage: 10 MG, UNKNOWN
     Route: 048
  2. CHERATUSSIN AC [Suspect]
     Dosage: EVERY FOUR TO SIX HOURS AS NEEDED
     Route: 048

REACTIONS (2)
  - Palpitations [Unknown]
  - Chest discomfort [Unknown]
